FAERS Safety Report 11716951 (Version 3)
Quarter: 2015Q4

REPORT INFORMATION
  Report Type: Spontaneous
  Country: US (occurrence: US)
  Receive Date: 20151104
  Receipt Date: 20151120
  Transmission Date: 20160304
  Serious: No
  Sender: FDA-Public Use
  Company Number: US-ELI_LILLY_AND_COMPANY-US201105008723

PATIENT
  Sex: Female

DRUGS (13)
  1. FORTEO [Suspect]
     Active Substance: TERIPARATIDE
     Dosage: 20 UG, QD
     Route: 065
  2. FORTEO [Suspect]
     Active Substance: TERIPARATIDE
     Dosage: 20 UG, QD
     Route: 065
  3. FORTEO [Suspect]
     Active Substance: TERIPARATIDE
     Dosage: 20 UG, QD
     Route: 065
  4. FORTEO [Suspect]
     Active Substance: TERIPARATIDE
     Dosage: 20 UG, QD
     Route: 065
     Dates: end: 201212
  5. FORTEO [Suspect]
     Active Substance: TERIPARATIDE
     Dosage: 20 UG, QD
     Route: 065
  6. FORTEO [Suspect]
     Active Substance: TERIPARATIDE
     Dosage: 20 UG, QD
     Route: 065
  7. FORTEO [Suspect]
     Active Substance: TERIPARATIDE
     Dosage: 20 UG, QD
     Route: 065
  8. FORTEO [Suspect]
     Active Substance: TERIPARATIDE
     Indication: OSTEOPOROSIS
     Dosage: 20 UG, QD
     Route: 065
     Dates: start: 201103
  9. FORTEO [Suspect]
     Active Substance: TERIPARATIDE
     Dosage: 20 UG, QD
     Route: 065
  10. FORTEO [Suspect]
     Active Substance: TERIPARATIDE
     Dosage: 20 UG, QD
     Route: 065
  11. SYNTHROID [Concomitant]
     Active Substance: LEVOTHYROXINE SODIUM
     Dosage: 200 MG, QD
  12. FORTEO [Suspect]
     Active Substance: TERIPARATIDE
     Dosage: 20 UG, QD
     Route: 065
  13. FORTEO [Suspect]
     Active Substance: TERIPARATIDE
     Dosage: 20 UG, QD
     Route: 065

REACTIONS (37)
  - Fatigue [Unknown]
  - Sleep disorder due to a general medical condition [Recovering/Resolving]
  - Colonoscopy [Unknown]
  - Pain [Not Recovered/Not Resolved]
  - Nausea [Unknown]
  - Temperature intolerance [Unknown]
  - Blood thyroid stimulating hormone decreased [Unknown]
  - Paraesthesia [Unknown]
  - Fibromyalgia [Unknown]
  - Feeling abnormal [Unknown]
  - Muscle spasms [Unknown]
  - Blood urine present [Not Recovered/Not Resolved]
  - Cataract [Unknown]
  - Arthritis [Unknown]
  - Malaise [Unknown]
  - Weight decreased [Unknown]
  - Anxiety [Unknown]
  - Blood pressure increased [Not Recovered/Not Resolved]
  - Arthralgia [Recovering/Resolving]
  - Pain [Unknown]
  - Pollakiuria [Not Recovered/Not Resolved]
  - Decreased activity [Recovering/Resolving]
  - Dizziness [Not Recovered/Not Resolved]
  - Arthralgia [Recovering/Resolving]
  - Insomnia [Unknown]
  - Limb discomfort [Unknown]
  - Blood pressure fluctuation [Not Recovered/Not Resolved]
  - Musculoskeletal discomfort [Unknown]
  - Pain in extremity [Not Recovered/Not Resolved]
  - Fear [Unknown]
  - Anxiety [Unknown]
  - Abdominal pain lower [Unknown]
  - Memory impairment [Unknown]
  - Middle insomnia [Unknown]
  - Diarrhoea [Recovered/Resolved]
  - Hypoacusis [Unknown]
  - Pain in extremity [Recovering/Resolving]

NARRATIVE: CASE EVENT DATE: 2011
